FAERS Safety Report 25170925 (Version 2)
Quarter: 2025Q2

REPORT INFORMATION
  Report Type: Spontaneous
  Country: US (occurrence: US)
  Receive Date: 20250408
  Receipt Date: 20250520
  Transmission Date: 20250717
  Serious: No
  Sender: VIIV
  Company Number: US-VIIV HEALTHCARE-US2025040802

PATIENT
  Sex: Female
  Weight: 63.5 kg

DRUGS (1)
  1. TIVICAY [Suspect]
     Active Substance: DOLUTEGRAVIR SODIUM
     Indication: HIV infection
     Dosage: UNK UNK, QD 50MG/1
     Route: 048
     Dates: start: 202201

REACTIONS (1)
  - No adverse event [Unknown]
